FAERS Safety Report 8918820 (Version 1)
Quarter: 2012Q4

REPORT INFORMATION
  Report Type: Spontaneous
  Country: US (occurrence: None)
  Receive Date: 20121115
  Receipt Date: 20121115
  Transmission Date: 20130627
  Serious: Yes (Hospitalization)
  Sender: FDA-Public Use
  Company Number: None

PATIENT
  Age: 59 Year
  Sex: Female
  Weight: 83 kg

DRUGS (1)
  1. PRADAXA [Suspect]
     Indication: ATRIAL FIBRILLATION
     Route: 048
     Dates: start: 20121029, end: 20121111

REACTIONS (6)
  - Mental status changes [None]
  - Hypoglycaemia [None]
  - Atrial fibrillation [None]
  - Candidiasis [None]
  - Haemoglobin decreased [None]
  - Faeces discoloured [None]
